FAERS Safety Report 6909446-0 (Version None)
Quarter: 2010Q3

REPORT INFORMATION
  Report Type: 
  Country: None (occurrence: None)
  Receive Date: 20100805
  Receipt Date: 20100728
  Transmission Date: 20110219
  Serious: Yes (Death, Hospitalization)
  Sender: FDA-Public Use
  Company Number: PH-BAXTER-2010BH019819

PATIENT
  Age: 62 Year
  Sex: Female

DRUGS (2)
  1. DIANEAL [Suspect]
     Indication: PERITONEAL DIALYSIS
     Route: 033
     Dates: start: 20100529, end: 20100718
  2. DIANEAL [Suspect]
     Route: 033
     Dates: start: 20100529, end: 20100718

REACTIONS (2)
  - CARDIO-RESPIRATORY ARREST [None]
  - GANGRENE [None]
